FAERS Safety Report 5285330-6 (Version None)
Quarter: 2007Q2

REPORT INFORMATION
  Report Type: 
  Country: None (occurrence: None)
  Receive Date: 20070403
  Receipt Date: 20070322
  Transmission Date: 20071010
  Serious: Yes (Other)
  Sender: FDA-Public Use
  Company Number: US-PFIZER INC-2007023945

PATIENT
  Sex: Female
  Weight: 61.2 kg

DRUGS (2)
  1. LYRICA [Suspect]
     Indication: NEURALGIA
     Route: 048
     Dates: start: 20070208, end: 20070209
  2. VALTREX [Concomitant]

REACTIONS (10)
  - BALANCE DISORDER [None]
  - DISORIENTATION [None]
  - DIZZINESS [None]
  - DRUG HYPERSENSITIVITY [None]
  - DRY MOUTH [None]
  - FALL [None]
  - MUSCULOSKELETAL CHEST PAIN [None]
  - PAIN IN EXTREMITY [None]
  - THINKING ABNORMAL [None]
  - VISUAL DISTURBANCE [None]
